FAERS Safety Report 25198118 (Version 6)
Quarter: 2025Q4

REPORT INFORMATION
  Report Type: Report from Study
  Country: CA (occurrence: CA)
  Receive Date: 20250415
  Receipt Date: 20251222
  Transmission Date: 20260118
  Serious: Yes (Other)
  Sender: TAKEDA
  Company Number: CA-TAKEDA-2024TUS062495

PATIENT
  Age: 37 Year
  Sex: Male

DRUGS (6)
  1. VEDOLIZUMAB [Suspect]
     Active Substance: VEDOLIZUMAB
     Indication: Crohn^s disease
     Dosage: 300 MILLIGRAM
  2. VEDOLIZUMAB [Suspect]
     Active Substance: VEDOLIZUMAB
     Dosage: 300 MILLIGRAM
  3. VEDOLIZUMAB [Suspect]
     Active Substance: VEDOLIZUMAB
     Dosage: 300 MILLIGRAM
  4. VEDOLIZUMAB [Suspect]
     Active Substance: VEDOLIZUMAB
     Dosage: 300 MILLIGRAM
  5. VEDOLIZUMAB [Suspect]
     Active Substance: VEDOLIZUMAB
     Dosage: 300 MILLIGRAM
  6. MESALAMINE [Concomitant]
     Active Substance: MESALAMINE
     Dosage: UNK

REACTIONS (18)
  - Crohn^s disease [Recovered/Resolved]
  - Drug effect less than expected [Not Recovered/Not Resolved]
  - Diarrhoea [Not Recovered/Not Resolved]
  - Abnormal faeces [Unknown]
  - Joint stiffness [Unknown]
  - Vitamin D deficiency [Not Recovered/Not Resolved]
  - Faeces soft [Recovered/Resolved]
  - Defaecation urgency [Unknown]
  - Abdominal pain [Not Recovered/Not Resolved]
  - Giardiasis [Not Recovered/Not Resolved]
  - Malaise [Unknown]
  - Constipation [Unknown]
  - Acne [Unknown]
  - Abdominal distension [Not Recovered/Not Resolved]
  - Arthralgia [Not Recovered/Not Resolved]
  - Fatigue [Unknown]
  - Back pain [Recovered/Resolved]
  - Faeces hard [Unknown]

NARRATIVE: CASE EVENT DATE: 20240601
